FAERS Safety Report 8761374 (Version 1)
Quarter: 2012Q4

REPORT INFORMATION
  Report Type: 
  Country: GB (occurrence: GB)
  Receive Date: 20120829
  Receipt Date: 20120829
  Transmission Date: 20130627
  Serious: Yes (Hospitalization, Congenital Anomaly, Other)
  Sender: FDA-Public Use
  Company Number: GB-PFIZER INC-2012209630

PATIENT
  Sex: Male

DRUGS (6)
  1. ATORVASTATIN [Suspect]
     Indication: HYPERTRIGLYCERIDAEMIA
     Dosage: 40 mg, UNK
     Route: 064
  2. ACETYLSALICYLIC ACID [Concomitant]
     Dosage: 75 mg, 4x/day
     Route: 064
  3. BETAMETHASONE [Concomitant]
     Indication: MATERNAL THERAPY TO ENHANCE FOETAL LUNG MATURITY
     Route: 064
  4. FENOFIBRATE [Concomitant]
     Indication: HYPERTRIGLYCERIDAEMIA
     Dosage: 200 mg, UNK
     Route: 064
  5. FOLIC ACID [Concomitant]
     Dosage: 5 mg, 4x/day
     Route: 064
  6. INSULIN [Concomitant]
     Indication: DIABETES MELLITUS
     Route: 064

REACTIONS (2)
  - Maternal exposure timing unspecified [Unknown]
  - Porencephaly [Unknown]
